FAERS Safety Report 8865099 (Version 1)
Quarter: 2012Q4

REPORT INFORMATION
  Report Type: 
  Country: US (occurrence: US)
  Receive Date: 20121024
  Receipt Date: 20121024
  Transmission Date: 20130627
  Serious: No
  Sender: FDA-Public Use
  Company Number: US-AMGEN-USASP2012000999

PATIENT
  Sex: Female

DRUGS (16)
  1. ENBREL [Suspect]
     Indication: PRODUCT USED FOR UNKNOWN INDICATION
     Dosage: 50 mg, qwk
     Route: 058
  2. METOPROLOL [Concomitant]
     Dosage: 25 mg, UNK
  3. QUINAPRIL [Concomitant]
     Dosage: 20 mg, UNK
  4. OMEPRAZOLE [Concomitant]
     Dosage: 40 mg, UNK
  5. CALCIUM [Concomitant]
  6. STOOL SOFTENER [Concomitant]
     Dosage: 100-30
  7. ASA [Concomitant]
     Dosage: 81 mg, UNK
  8. FIBER [Concomitant]
  9. B-12 [Concomitant]
     Dosage: 250 mcg
  10. HYDROXYCHLOROQUINE [Concomitant]
     Dosage: 200 mg, UNK
  11. FOLIC ACID [Concomitant]
     Dosage: 1 mg, UNK
  12. PREDNISONE [Concomitant]
     Dosage: 1 mg, UNK
  13. METHOTREXATE [Concomitant]
     Dosage: 2.5 mg, UNK
  14. SIMVASTATIN [Concomitant]
     Dosage: 10 mg, UNK
  15. AMITRIPTYLIN [Concomitant]
     Dosage: 10 mg, UNK
  16. TYLENOL [Concomitant]

REACTIONS (1)
  - Rash [Unknown]
